FAERS Safety Report 16775417 (Version 2)
Quarter: 2019Q3

REPORT INFORMATION
  Report Type: Spontaneous
  Country: US (occurrence: US)
  Receive Date: 20190905
  Receipt Date: 20190905
  Transmission Date: 20191005
  Serious: Yes (Life-Threatening, Hospitalization, Other)
  Sender: FDA-Public Use
  Company Number: US-PFIZER INC-2019370648

PATIENT
  Age: 14 Year
  Sex: Male

DRUGS (12)
  1. LORAZEPAM. [Suspect]
     Active Substance: LORAZEPAM
     Dosage: 18 MG, 1X/DAY HOD 1
  2. OLANZAPINE. [Suspect]
     Active Substance: OLANZAPINE
     Dosage: 2.5 MG, 1X/DAY HOD 2 TO 5
  3. LORAZEPAM. [Suspect]
     Active Substance: LORAZEPAM
     Dosage: 3 MG, 1X/DAY HOD 9
  4. OLANZAPINE. [Suspect]
     Active Substance: OLANZAPINE
     Dosage: 5 MG, 1X/DAY HOD 6 + 7
  5. LORAZEPAM. [Suspect]
     Active Substance: LORAZEPAM
     Indication: CATATONIA
     Dosage: 6 MG, 1X/DAY HOD 7
  6. OLANZAPINE. [Suspect]
     Active Substance: OLANZAPINE
     Indication: AFFECTIVE DISORDER
     Dosage: 7.5 MG, 1X/DAY HOD 8 TO 11
  7. LORAZEPAM. [Suspect]
     Active Substance: LORAZEPAM
     Dosage: 15 MG, 1X/DAY HOD 2 + 3
  8. LORAZEPAM. [Suspect]
     Active Substance: LORAZEPAM
     Dosage: 9 MG, 1X/DAY HOD 5 + 6
  9. LORAZEPAM. [Suspect]
     Active Substance: LORAZEPAM
     Dosage: 4 MG, 1X/DAY HOD 8
  10. LORAZEPAM. [Suspect]
     Active Substance: LORAZEPAM
     Dosage: 12 MG, 1X/DAY HOD 4
  11. LORAZEPAM. [Suspect]
     Active Substance: LORAZEPAM
     Dosage: 1 MG, 1X/DAY HOD 11
  12. LORAZEPAM. [Suspect]
     Active Substance: LORAZEPAM
     Dosage: 2 MG, 1X/DAY HOD 10

REACTIONS (5)
  - Product use in unapproved indication [Unknown]
  - Withdrawal catatonia [Recovered/Resolved]
  - Withdrawal syndrome [Recovered/Resolved]
  - Off label use [Unknown]
  - Hypoxia [Recovered/Resolved]
